FAERS Safety Report 15937652 (Version 2)
Quarter: 2019Q1

REPORT INFORMATION
  Report Type: Report from Study
  Country: FR (occurrence: FR)
  Receive Date: 20190208
  Receipt Date: 20190219
  Transmission Date: 20190417
  Serious: Yes (Death, Hospitalization, Other)
  Sender: FDA-Public Use
  Company Number: FR-BAUSCH-BL-2019-003478

PATIENT
  Age: 81 Year
  Sex: Male
  Weight: 78 kg

DRUGS (5)
  1. LENALIDOMIDE [Suspect]
     Active Substance: LENALIDOMIDE
     Indication: PLASMA CELL MYELOMA
     Dosage: UNKNOWN
     Route: 048
     Dates: start: 20181219, end: 20190102
  2. DEXAMETHASONE. [Suspect]
     Active Substance: DEXAMETHASONE
     Indication: PLASMA CELL MYELOMA
     Dosage: UNKNOWN
     Route: 048
     Dates: start: 20181219
  3. IXAZOMIB [Suspect]
     Active Substance: IXAZOMIB
     Indication: PLASMA CELL MYELOMA
     Route: 048
     Dates: start: 20181219, end: 20181219
  4. FUROSEMIDE. [Concomitant]
     Active Substance: FUROSEMIDE
     Indication: HYPERKALAEMIA
     Dosage: UNKNOWN
     Route: 042
     Dates: start: 20190103
  5. METHADONE [Concomitant]
     Active Substance: METHADONE HYDROCHLORIDE
     Indication: PAIN

REACTIONS (10)
  - Peripheral coldness [Fatal]
  - Hyperviscosity syndrome [Unknown]
  - Confusional state [Recovered/Resolved]
  - Cyanosis [Fatal]
  - Influenza [Fatal]
  - Hypercalcaemia [Recovered/Resolved]
  - Pain in extremity [Unknown]
  - Plasma cell myeloma [Unknown]
  - Respiratory distress [Fatal]
  - General physical health deterioration [Unknown]

NARRATIVE: CASE EVENT DATE: 20190102
